FAERS Safety Report 16987276 (Version 1)
Quarter: 2019Q4

REPORT INFORMATION
  Report Type: Spontaneous
  Country: US (occurrence: US)
  Receive Date: 20190919
  Receipt Date: 20190919
  Transmission Date: 20200122
  Serious: No
  Sender: FDA-Public Use
  Company Number: None

PATIENT
  Age: 45 Year
  Sex: Female

DRUGS (1)
  1. OCREVUS [Suspect]
     Active Substance: OCRELIZUMAB
     Indication: MULTIPLE SCLEROSIS
     Dosage: ?          OTHER FREQUENCY:DAY 1;?
     Route: 042
     Dates: start: 20190912, end: 20190912

REACTIONS (5)
  - Chest discomfort [None]
  - Rash [None]
  - Infusion related reaction [None]
  - Nausea [None]
  - Throat irritation [None]

NARRATIVE: CASE EVENT DATE: 20190912
